FAERS Safety Report 5441817-4 (Version None)
Quarter: 2007Q3

REPORT INFORMATION
  Report Type: 
  Country: None (occurrence: None)
  Receive Date: 20070830
  Receipt Date: 20070830
  Transmission Date: 20080115
  Serious: Yes (Other)
  Sender: FDA-Public Use
  Company Number: None

PATIENT
  Age: 51 Year
  Sex: Female
  Weight: 124.7392 kg

DRUGS (7)
  1. LEVAQUIN [Suspect]
     Indication: KIDNEY INFECTION
     Dosage: 500MG TABLETS 1X PER DAY
     Dates: start: 20070818, end: 20070823
  2. LEVAQUIN [Suspect]
  3. WELLBUTRIN [Concomitant]
  4. PROVIGIL [Concomitant]
  5. XALATAN [Concomitant]
  6. SINGULAIR [Concomitant]
  7. BENTYL [Concomitant]

REACTIONS (3)
  - MUSCLE SPASMS [None]
  - NEURALGIA [None]
  - PAIN IN EXTREMITY [None]
